FAERS Safety Report 19474404 (Version 1)
Quarter: 2021Q2

REPORT INFORMATION
  Report Type: Spontaneous
  Country: ES (occurrence: ES)
  Receive Date: 20210630
  Receipt Date: 20210630
  Transmission Date: 20210717
  Serious: Yes (Death)
  Sender: FDA-Public Use
  Company Number: ES-JNJFOC-20210653028

PATIENT
  Sex: Female

DRUGS (1)
  1. DUROGESIC [Suspect]
     Active Substance: FENTANYL
     Indication: PAIN
     Route: 065

REACTIONS (4)
  - Pruritus [Fatal]
  - Erythema [Fatal]
  - Blister [Fatal]
  - Hypersensitivity [Fatal]
